FAERS Safety Report 14491666 (Version 1)
Quarter: 2018Q1

REPORT INFORMATION
  Report Type: Spontaneous
  Country: GB (occurrence: GB)
  Receive Date: 20180206
  Receipt Date: 20180206
  Transmission Date: 20180509
  Serious: Yes (Hospitalization, Other)
  Sender: FDA-Public Use
  Company Number: GB-MYLANLABS-2018M1006926

PATIENT
  Age: 15 Year
  Sex: Female
  Weight: 70.7 kg

DRUGS (34)
  1. DOXYCYCLINE. [Concomitant]
     Active Substance: DOXYCYCLINE
     Indication: VASCULITIS
     Dosage: 400 MG, QD
     Route: 065
     Dates: start: 20171027
  2. HUMIRA [Suspect]
     Active Substance: ADALIMUMAB
     Dosage: 40 MG, UNK
     Route: 058
     Dates: start: 201710
  3. CIPROFLOXACIN. [Concomitant]
     Active Substance: CIPROFLOXACIN
     Indication: CROHN^S DISEASE
     Dosage: 1500 MG, QD
     Route: 048
     Dates: start: 20170810, end: 20170827
  4. CIPROFLOXACIN. [Concomitant]
     Active Substance: CIPROFLOXACIN
     Dosage: 1200 MG, QD
     Route: 040
     Dates: start: 20170726, end: 20170810
  5. SYNALAR [Concomitant]
     Active Substance: FLUOCINOLONE ACETONIDE
     Indication: LOCALISED INFECTION
     Dosage: GEL FOR SCALP 2 QD
     Route: 061
     Dates: start: 20170731
  6. KETOCONAZOLE. [Concomitant]
     Active Substance: KETOCONAZOLE
     Indication: FUNGAL INFECTION
     Dosage: SHAMPOO
     Route: 061
     Dates: start: 20170731
  7. PREDNISOLONE. [Concomitant]
     Active Substance: PREDNISOLONE
     Indication: CROHN^S DISEASE
     Dosage: 40 MG, QD
     Route: 048
     Dates: start: 20171026
  8. CHLORPHENAMINE [Concomitant]
     Active Substance: CHLORPHENIRAMINE MALEATE
     Indication: RASH
     Dosage: 16 MG, QD
     Dates: start: 20170726, end: 201708
  9. CIPROFLOXACIN. [Concomitant]
     Active Substance: CIPROFLOXACIN
     Dosage: 1500 MG, QD
     Route: 048
     Dates: start: 20170112, end: 20170518
  10. CIPROFLOXACIN. [Concomitant]
     Active Substance: CIPROFLOXACIN
     Dosage: 1200 MG, UNK
     Route: 040
     Dates: start: 20171027, end: 20171030
  11. FRESUBIN                           /07459901/ [Concomitant]
     Active Substance: CARBOHYDRATES\FATTY ACIDS\MINERALS\PROTEIN\VITAMINS
     Indication: HYPOPHAGIA
     Dosage: 200 ML, QD
     Route: 048
     Dates: start: 20171028
  12. EUMOVATE OINTMENT [Concomitant]
     Indication: VASCULITIS
     Dosage: 0.1 %, QD
     Route: 061
     Dates: start: 20171130
  13. NYSTATIN. [Concomitant]
     Active Substance: NYSTATIN
     Indication: VASCULITIS
     Route: 061
     Dates: start: 20171027
  14. ITRACONAZOLE. [Concomitant]
     Active Substance: ITRACONAZOLE
     Indication: ASPERGILLUS INFECTION
     Dosage: 200 MG, QD
     Route: 048
     Dates: start: 20170825
  15. AZATHIOPRINE. [Suspect]
     Active Substance: AZATHIOPRINE
     Dosage: 150 MG, QD
     Route: 048
     Dates: start: 20161212, end: 201708
  16. CIPROFLOXACIN. [Concomitant]
     Active Substance: CIPROFLOXACIN
     Dosage: 1200 MG, UNK
     Route: 040
     Dates: start: 20170827, end: 20170907
  17. BETAMETHASONE. [Concomitant]
     Active Substance: BETAMETHASONE
     Indication: VASCULITIS
     Dosage: 2000 G, QD
     Route: 065
     Dates: start: 20171028
  18. PROTOPIC [Concomitant]
     Active Substance: TACROLIMUS
     Indication: VASCULITIS
     Dosage: ALTERNATE DAYS
     Route: 061
  19. PROTOPIC [Concomitant]
     Active Substance: TACROLIMUS
     Indication: GRANULOMA
     Dosage: 0.2 %, QD
     Route: 061
     Dates: start: 2016
  20. CHLORHEXIDINE [Concomitant]
     Active Substance: CHLORHEXIDINE
     Indication: VASCULITIS
     Dosage: 40 ML, QD
     Dates: start: 20171030
  21. TRIMOVATE                          /00456501/ [Concomitant]
     Indication: RASH
     Dosage: 2 UNK, UNK
     Route: 061
     Dates: start: 20170729
  22. AZATHIOPRINE. [Suspect]
     Active Substance: AZATHIOPRINE
     Indication: CROHN^S DISEASE
     Dosage: 100 MG, QD
     Route: 048
     Dates: start: 20090401, end: 20161211
  23. AZATHIOPRINE. [Suspect]
     Active Substance: AZATHIOPRINE
     Dosage: 100 MG, QD
     Route: 048
     Dates: start: 20160831, end: 20161211
  24. CIPROFLOXACIN. [Concomitant]
     Active Substance: CIPROFLOXACIN
     Dosage: 1500 MG, QD
     Route: 048
     Dates: start: 20171031
  25. FERROUS SULFATE. [Concomitant]
     Active Substance: FERROUS SULFATE
     Indication: CROHN^S DISEASE
     Dosage: 200 MG, QD
     Route: 048
     Dates: start: 20121003
  26. CIPROFLOXACIN. [Concomitant]
     Active Substance: CIPROFLOXACIN
     Dosage: 1500 MG, QD
     Route: 048
     Dates: start: 20170907, end: 20171027
  27. HUMIRA [Suspect]
     Active Substance: ADALIMUMAB
     Indication: CROHN^S DISEASE
     Dosage: 80 MG, UNK
     Route: 058
     Dates: start: 20170112, end: 20170727
  28. CIPROFLOXACIN. [Concomitant]
     Active Substance: CIPROFLOXACIN
     Dosage: 1000 MG, QD
     Route: 048
     Dates: start: 20161109, end: 20170107
  29. CIPROFLOXACIN. [Concomitant]
     Active Substance: CIPROFLOXACIN
     Dosage: 1500 MG, QD
     Route: 040
     Dates: start: 20170107, end: 20170112
  30. LOTRIDERM [Concomitant]
     Active Substance: BETAMETHASONE DIPROPIONATE\CLOTRIMAZOLE
     Indication: VASCULITIS
     Route: 061
     Dates: start: 20171028
  31. ADCAL D3 [Concomitant]
     Active Substance: CALCIUM CARBONATE\CHOLECALCIFEROL
     Indication: VITAMIN D DEFICIENCY
     Dosage: 1 DF, QD
     Route: 048
     Dates: start: 20171028
  32. DERMOL                             /00337102/ [Concomitant]
     Active Substance: CLOBETASOL PROPIONATE
     Indication: VASCULITIS
     Dosage: LOTION
     Route: 061
     Dates: start: 2016
  33. MOVICOL [Concomitant]
     Active Substance: POLYETHYLENE GLYCOL 3350\POTASSIUM CHLORIDE\SODIUM BICARBONATE\SODIUM CHLORIDE
     Indication: CROHN^S DISEASE
     Dosage: 2 DF, QD
     Route: 048
     Dates: start: 20161109
  34. OMEPRAZOLE. [Concomitant]
     Active Substance: OMEPRAZOLE
     Indication: CROHN^S DISEASE
     Route: 048
     Dates: start: 20170828

REACTIONS (4)
  - Crohn^s disease [Recovered/Resolved]
  - Rash [Not Recovered/Not Resolved]
  - Stoma site infection [Recovered/Resolved]
  - Anal fistula [Recovered/Resolved]

NARRATIVE: CASE EVENT DATE: 201707
